FAERS Safety Report 17565080 (Version 1)
Quarter: 2020Q1

REPORT INFORMATION
  Report Type: Spontaneous
  Country: DE (occurrence: DE)
  Receive Date: 20200320
  Receipt Date: 20200320
  Transmission Date: 20200409
  Serious: Yes (Other)
  Sender: FDA-Public Use
  Company Number: DE-AMGEN-DEUSP2020043399

PATIENT
  Age: 44 Year
  Sex: Female
  Weight: 78 kg

DRUGS (15)
  1. ENTRESTO [Concomitant]
     Active Substance: SACUBITRIL\VALSARTAN
     Dosage: 24/26
  2. METOPROLOL. [Concomitant]
     Active Substance: METOPROLOL
     Dosage: 47.5 UNK, QD
  3. KALINOR [Concomitant]
     Dosage: UNK UNK, BID
  4. FOLSAN [Concomitant]
     Active Substance: FOLIC ACID
     Dosage: 5 MILLIGRAM, QD
  5. METHOTREXATE. [Concomitant]
     Active Substance: METHOTREXATE
     Dosage: 20 MILLIGRAM, QWK
  6. FLUTICASONE FUROATE;VILANTEROL [Concomitant]
     Active Substance: FLUTICASONE FUROATE\VILANTEROL TRIFENATATE
     Dosage: 200/25
  7. MIRENA [Concomitant]
     Active Substance: LEVONORGESTREL
     Dosage: UNK
     Dates: start: 2000
  8. SALBUTAMOL [Concomitant]
     Active Substance: ALBUTEROL
     Dosage: 0.1 SPRAY
  9. REPATHA [Suspect]
     Active Substance: EVOLOCUMAB
     Indication: PRODUCT USED FOR UNKNOWN INDICATION
     Dosage: 140 MILLIGRAM, Q2WK
     Route: 065
  10. SIMVASTATIN. [Concomitant]
     Active Substance: SIMVASTATIN
     Dosage: 40 MILLIGRAM
  11. PREDNISOLON [Concomitant]
     Active Substance: PREDNISOLONE
     Dosage: 30 MILLIGRAM
  12. PANTOPRAZOLE [Concomitant]
     Active Substance: PANTOPRAZOLE
     Dosage: 40 MILLIGRAM, QD
  13. EPLERENONE. [Concomitant]
     Active Substance: EPLERENONE
     Dosage: 25 MILLIGRAM, QD
  14. LEVOTHYROXIN [Concomitant]
     Active Substance: LEVOTHYROXINE
     Dosage: 25 UNK
  15. DEKRISTOL [Concomitant]
     Active Substance: CHOLECALCIFEROL
     Dosage: 20000 IE

REACTIONS (2)
  - Cardiac pacemaker insertion [Unknown]
  - Subclavian vein thrombosis [Unknown]

NARRATIVE: CASE EVENT DATE: 20190612
